FAERS Safety Report 17477096 (Version 2)
Quarter: 2020Q2

REPORT INFORMATION
  Report Type: Spontaneous
  Country: US (occurrence: US)
  Receive Date: 20200229
  Receipt Date: 20200407
  Transmission Date: 20200713
  Serious: No
  Sender: FDA-Public Use
  Company Number: US-JNJFOC-20200224245

PATIENT
  Age: 69 Year
  Sex: Female
  Weight: 51.76 kg

DRUGS (1)
  1. PEPCID AC [Suspect]
     Active Substance: FAMOTIDINE
     Indication: DYSPEPSIA
     Dosage: DATE OF LAST ADMIN: 11/FEB/2020
     Route: 048
     Dates: start: 20200210

REACTIONS (2)
  - Tongue discomfort [Recovered/Resolved]
  - Tongue discolouration [Recovered/Resolved]

NARRATIVE: CASE EVENT DATE: 20200211
